FAERS Safety Report 7731425-4 (Version None)
Quarter: 2011Q3

REPORT INFORMATION
  Report Type: 
  Country: None (occurrence: None)
  Receive Date: 20110906
  Receipt Date: 20101210
  Transmission Date: 20111222
  Serious: No
  Sender: FDA-Public Use
  Company Number: US-BAYER-2010-006845

PATIENT
  Age: 68 Year
  Sex: Female

DRUGS (4)
  1. CITALOPRAM [Concomitant]
  2. CIPRO [Suspect]
     Indication: URINARY TRACT INFECTION
     Dosage: 500 MG, BID
     Route: 048
     Dates: start: 20100811
  3. HYDROCHLOROTHIAZIDE [Concomitant]
  4. SLEEP [NITRAZEPAM] [Concomitant]

REACTIONS (2)
  - PAIN [None]
  - ARTHRALGIA [None]
